FAERS Safety Report 21314603 (Version 1)
Quarter: 2022Q3

REPORT INFORMATION
  Report Type: Spontaneous
  Country: US (occurrence: None)
  Receive Date: 20220909
  Receipt Date: 20220909
  Transmission Date: 20221027
  Serious: No
  Sender: FDA-Public Use
  Company Number: US-ARIS GLOBAL-202110-1854

PATIENT
  Age: 73 Year
  Sex: Female

DRUGS (3)
  1. OXERVATE [Suspect]
     Active Substance: CENEGERMIN-BKBJ
     Indication: Neurotrophic keratopathy
     Route: 047
     Dates: start: 20211007
  2. REFRESH CLASSIC [Concomitant]
     Active Substance: POLYVINYL ALCOHOL\POVIDONE
  3. TIMOLOL MALEATE [Concomitant]
     Active Substance: TIMOLOL MALEATE

REACTIONS (6)
  - Eye pain [Unknown]
  - Abnormal sensation in eye [Unknown]
  - Eye irritation [Unknown]
  - Lacrimation increased [Unknown]
  - Eye swelling [Unknown]
  - Pain in jaw [Unknown]

NARRATIVE: CASE EVENT DATE: 20211008
